FAERS Safety Report 14713516 (Version 1)
Quarter: 2018Q2

REPORT INFORMATION
  Report Type: Spontaneous
  Country: MX (occurrence: MX)
  Receive Date: 20180404
  Receipt Date: 20180404
  Transmission Date: 20180711
  Serious: Yes (Hospitalization)
  Sender: FDA-Public Use
  Company Number: MX-MYLANLABS-2018M1021370

PATIENT
  Age: 28 Year
  Sex: Male

DRUGS (6)
  1. ABACAVIR. [Interacting]
     Active Substance: ABACAVIR
     Indication: HIV INFECTION
     Dosage: 600 MG/DAY
     Route: 065
  2. METFORMIN [Suspect]
     Active Substance: METFORMIN HYDROCHLORIDE
     Route: 065
  3. LOPINAVIR/RITONAVIR [Concomitant]
     Active Substance: LOPINAVIR\RITONAVIR
     Indication: HIV INFECTION
     Dosage: PER DAY
     Route: 065
  4. TENOFOVIR [Interacting]
     Active Substance: TENOFOVIR
     Indication: HIV INFECTION
     Dosage: 300 MG/DAY
     Route: 065
  5. NPH INSULIN [Concomitant]
     Active Substance: INSULIN BEEF
     Indication: TYPE 2 DIABETES MELLITUS
     Dosage: 40 IU/DAY
     Route: 065
  6. METFORMIN [Suspect]
     Active Substance: METFORMIN HYDROCHLORIDE
     Indication: TYPE 2 DIABETES MELLITUS
     Dosage: 2550 MG/DAY
     Route: 065

REACTIONS (2)
  - Drug interaction [Recovered/Resolved]
  - Lactic acidosis [Recovered/Resolved]
